FAERS Safety Report 10526891 (Version 1)
Quarter: 2014Q4

REPORT INFORMATION
  Report Type: Spontaneous
  Country: US (occurrence: None)
  Receive Date: 20141016
  Receipt Date: 20141016
  Transmission Date: 20150528
  Serious: Yes (Other)
  Sender: FDA-Public Use
  Company Number: 2014VID00048

PATIENT
  Age: 32 Month
  Sex: Male
  Weight: 13.4 kg

DRUGS (3)
  1. ITRACONCOLE [Concomitant]
  2. ACTIMMUNE [Suspect]
     Active Substance: INTERFERON GAMMA-1B
     Indication: CHRONIC GRANULOMATOUS DISEASE
     Dosage: 3X/WEEK
     Route: 030
     Dates: start: 201204
  3. TMP/SMX [Concomitant]
     Active Substance: SULFAMETHOXAZOLE\TRIMETHOPRIM

REACTIONS (5)
  - Neutropenia [None]
  - Injection site swelling [None]
  - Hypersensitivity [None]
  - Incorrect route of drug administration [None]
  - Cellulitis [None]

NARRATIVE: CASE EVENT DATE: 20140911
